FAERS Safety Report 5350217-7 (Version None)
Quarter: 2007Q2

REPORT INFORMATION
  Report Type: 
  Country: None (occurrence: None)
  Receive Date: 20070521
  Receipt Date: 20070316
  Transmission Date: 20071010
  Serious: No
  Sender: FDA-Public Use
  Company Number: WAES 0703USA03368

PATIENT
  Age: 73 Year
  Sex: Female

DRUGS (3)
  1. JANUVIA [Suspect]
     Indication: DIABETES MELLITUS
     Dosage: 100 MG/DAILY/PO
     Route: 048
     Dates: start: 20070215, end: 20070315
  2. LIPITOR [Concomitant]
  3. XANAX [Concomitant]

REACTIONS (5)
  - CIRCADIAN RHYTHM SLEEP DISORDER [None]
  - FORMICATION [None]
  - HEADACHE [None]
  - PRURITUS [None]
  - UPPER RESPIRATORY TRACT INFECTION [None]
